FAERS Safety Report 4278727-4 (Version None)
Quarter: 2004Q1

REPORT INFORMATION
  Report Type: 
  Country: None (occurrence: None)
  Receive Date: 20040102
  Receipt Date: 20031103
  Transmission Date: 20041129
  Serious: No
  Sender: FDA-Public Use
  Company Number: BLOC000367

PATIENT
  Age: 70 Year
  Sex: Female

DRUGS (6)
  1. MYOBLOC [Suspect]
     Indication: DYSTONIA
     Dosage: INTRAMUSCULAR
     Route: 030
     Dates: start: 20010815, end: 20010815
  2. AZMACORT (TRIACINOLONE) [Concomitant]
  3. MAXAIR [Concomitant]
  4. ULTRAM [Concomitant]
  5. ADVIL (IBUPROFEN LYSINATE) [Concomitant]
  6. ULTRAM [Concomitant]

REACTIONS (9)
  - BLOOD CARBON MONOXIDE [None]
  - DEHYDRATION [None]
  - DRY MOUTH [None]
  - DYSPHAGIA [None]
  - GASTROOESOPHAGEAL REFLUX DISEASE [None]
  - NASAL CONGESTION [None]
  - NECK PAIN [None]
  - RESPIRATORY TRACT CONGESTION [None]
  - SPEECH DISORDER [None]
